FAERS Safety Report 13696381 (Version 2)
Quarter: 2017Q3

REPORT INFORMATION
  Report Type: Spontaneous
  Country: US (occurrence: US)
  Receive Date: 20170628
  Receipt Date: 20170810
  Transmission Date: 20171127
  Serious: No
  Sender: FDA-Public Use
  Company Number: US-ASTRAZENECA-2017SE66052

PATIENT
  Age: 26630 Day
  Sex: Male
  Weight: 117.9 kg

DRUGS (1)
  1. SYMBICORT [Suspect]
     Active Substance: BUDESONIDE\FORMOTEROL FUMARATE DIHYDRATE
     Indication: CHRONIC OBSTRUCTIVE PULMONARY DISEASE
     Dosage: 160MCG/4.5MCG, 2 PUFFS TWO TIMES A DAY
     Route: 055

REACTIONS (9)
  - Hypoacusis [Not Recovered/Not Resolved]
  - Device issue [Unknown]
  - Drug effect decreased [Unknown]
  - Intentional product misuse [Unknown]
  - Macular degeneration [Not Recovered/Not Resolved]
  - Glossodynia [Unknown]
  - Vision blurred [Not Recovered/Not Resolved]
  - Body height decreased [Not Recovered/Not Resolved]
  - Drug dose omission [Not Recovered/Not Resolved]

NARRATIVE: CASE EVENT DATE: 20170622
